FAERS Safety Report 23731668 (Version 3)
Quarter: 2024Q2

REPORT INFORMATION
  Report Type: Report from Study
  Country: AT (occurrence: AT)
  Receive Date: 20240411
  Receipt Date: 20240529
  Transmission Date: 20240716
  Serious: Yes (Hospitalization)
  Sender: FDA-Public Use
  Company Number: AT-ABBVIE-5293088

PATIENT
  Age: 65 Year
  Sex: Male
  Weight: 80 kg

DRUGS (79)
  1. NICOTINE [Suspect]
     Active Substance: NICOTINE
     Indication: Product used for unknown indication
     Dosage: UNK
     Route: 065
  2. PANTOPRAZOLE SODIUM [Concomitant]
     Active Substance: PANTOPRAZOLE SODIUM
     Indication: Product used for unknown indication
     Dosage: FREQUENCY TEXT: DAILY
     Route: 048
     Dates: start: 20230422
  3. FOLIC ACID [Concomitant]
     Active Substance: FOLIC ACID
     Indication: Product used for unknown indication
     Route: 048
     Dates: start: 20240115
  4. FERINJECT [Concomitant]
     Active Substance: FERRIC CARBOXYMALTOSE
     Indication: Product used for unknown indication
     Dosage: FREQUENCY TEXT: ONCE
     Route: 040
     Dates: start: 20230525, end: 20230525
  5. POLYETHYLENE GLYCOL 3350\POTASSIUM CHLORIDE\SODIUM BICARBONATE\SODIUM [Concomitant]
     Active Substance: POLYETHYLENE GLYCOL 3350\POTASSIUM CHLORIDE\SODIUM BICARBONATE\SODIUM CHLORIDE
     Indication: Product used for unknown indication
     Dosage: FREQUENCY TEXT: AS REQUIRED, UP TO 3X DAILY
     Route: 048
     Dates: start: 20240115
  6. ASPIRIN [Concomitant]
     Active Substance: ASPIRIN
     Indication: Product used for unknown indication
     Dosage: FREQUENCY TEXT: DAILY
     Route: 048
     Dates: end: 20230524
  7. PERFALGAN [Concomitant]
     Active Substance: ACETAMINOPHEN
     Indication: Product used for unknown indication
     Dosage: FREQUENCY TEXT: AS REQUIRED
     Route: 040
     Dates: start: 20230525, end: 20230528
  8. OCTENISEPT [OCTENIDINE HYDROCHLORIDE;PHENOXYETHANOL] [Concomitant]
     Indication: Product used for unknown indication
     Dosage: UNK UNK, TID
     Route: 048
     Dates: start: 20230524, end: 20230606
  9. AZACITIDINE [Concomitant]
     Active Substance: AZACITIDINE
     Indication: Product used for unknown indication
     Dosage: FREQUENCY TEXT: STANDARD DOSE
     Dates: start: 20230816, end: 20230818
  10. AZACITIDINE [Concomitant]
     Active Substance: AZACITIDINE
     Dosage: FREQUENCY TEXT: STANDARD DOSE
     Dates: start: 20230821, end: 20230822
  11. AZACITIDINE [Concomitant]
     Active Substance: AZACITIDINE
     Dosage: FREQUENCY TEXT: STANDARD DOSE
     Dates: start: 20240408, end: 20240412
  12. AZACITIDINE [Concomitant]
     Active Substance: AZACITIDINE
     Dosage: STANDARD DOSE
     Dates: start: 20230515, end: 20230516
  13. AZACITIDINE [Concomitant]
     Active Substance: AZACITIDINE
     Dosage: STANDARD DOSE
     Dates: start: 20230619, end: 20230623
  14. AZACITIDINE [Concomitant]
     Active Substance: AZACITIDINE
     Dosage: STANDARD DOSE
     Dates: start: 20230508, end: 20230512
  15. AZACITIDINE [Concomitant]
     Active Substance: AZACITIDINE
     Dosage: FREQUENCY TEXT: STANDARD DOSE
     Dates: start: 20231218, end: 20231222
  16. AZACITIDINE [Concomitant]
     Active Substance: AZACITIDINE
     Dosage: FREQUENCY TEXT: STANDARD DOSE
     Dates: start: 20230717, end: 20230721
  17. AZACITIDINE [Concomitant]
     Active Substance: AZACITIDINE
     Dosage: FREQUENCY TEXT: STANDARD DOSE
     Dates: start: 20231106, end: 20231110
  18. AZACITIDINE [Concomitant]
     Active Substance: AZACITIDINE
     Dosage: FREQUENCY TEXT: STANDARD DOSE
     Dates: start: 20231009, end: 20231013
  19. AZACITIDINE [Concomitant]
     Active Substance: AZACITIDINE
     Dosage: FREQUENCY TEXT: STANDARD DOSE
     Dates: start: 20240311, end: 20240315
  20. AZACITIDINE [Concomitant]
     Active Substance: AZACITIDINE
     Dosage: FREQUENCY TEXT: STANDARD DOSE
     Dates: start: 20230911, end: 20230915
  21. AZACITIDINE [Concomitant]
     Active Substance: AZACITIDINE
     Dosage: FREQUENCY TEXT: STANDARD DOSE
     Dates: start: 20240212, end: 20240216
  22. AZACITIDINE [Concomitant]
     Active Substance: AZACITIDINE
     Dosage: FREQUENCY TEXT: STANDARD DOSE
     Dates: start: 20240506, end: 20240510
  23. MYCOSTATIN [Concomitant]
     Active Substance: NYSTATIN
     Indication: Product used for unknown indication
     Dosage: 1 ML, QID
     Route: 048
     Dates: start: 20230421, end: 20230502
  24. MYCOSTATIN [Concomitant]
     Active Substance: NYSTATIN
     Dosage: 2 ML, QID
     Dates: start: 20230524, end: 20230529
  25. MYCOSTATIN [Concomitant]
     Active Substance: NYSTATIN
     Dosage: 1 ML, QID
     Dates: start: 20240115
  26. GRANULOCYTE COLONY-STIMULATING FACTOR NOS [Concomitant]
     Active Substance: GRANULOCYTE COLONY-STIMULATING FACTOR NOS
     Indication: Supportive care
     Dosage: FREQUENCY TEXT: DAILYDOSE 0.8 ML
     Dates: start: 20230524, end: 20230602
  27. AUGMENTIN [Concomitant]
     Active Substance: AMOXICILLIN\CLAVULANATE POTASSIUM
     Indication: Product used for unknown indication
     Dosage: 1000 MG, BID
     Route: 048
     Dates: start: 20230421, end: 20230507
  28. ROCEPHIN [Concomitant]
     Active Substance: CEFTRIAXONE SODIUM
     Indication: Infection
     Dosage: FREQUENCY TEXT: DAILY
     Route: 040
     Dates: start: 20230526, end: 20230605
  29. RAMIPRIL [Concomitant]
     Active Substance: RAMIPRIL
     Indication: Product used for unknown indication
     Dosage: FREQUENCY TEXT: DAILY
     Route: 048
  30. VANCOMYCIN [Concomitant]
     Active Substance: VANCOMYCIN
     Indication: Infection
     Dosage: 1 G, BID
     Route: 040
     Dates: start: 20230526, end: 20230605
  31. ACETAMINOPHEN [Concomitant]
     Active Substance: ACETAMINOPHEN
     Indication: Product used for unknown indication
     Dosage: AS REQUIRED
     Route: 048
     Dates: start: 20230508
  32. BENZYDAMINE HYDROCHLORIDE [Concomitant]
     Active Substance: BENZYDAMINE HYDROCHLORIDE
     Indication: Product used for unknown indication
     Dosage: 3 MG, QID
     Route: 048
     Dates: start: 20230421, end: 20230502
  33. ENOXAPARIN SODIUM [Concomitant]
     Active Substance: ENOXAPARIN SODIUM
     Indication: Product used for unknown indication
     Dosage: FREQUENCY TEXT: DAILY
     Route: 058
     Dates: start: 20230601, end: 20230605
  34. ENOXAPARIN SODIUM [Concomitant]
     Active Substance: ENOXAPARIN SODIUM
     Dosage: FREQUENCY TEXT: DAILY
     Route: 058
     Dates: start: 20230420, end: 20230502
  35. ENOXAPARIN SODIUM [Concomitant]
     Active Substance: ENOXAPARIN SODIUM
     Dosage: FREQUENCY TEXT: DAILY
     Dates: start: 20230611, end: 20230615
  36. SULTAMICILLIN TOSYLATE [Concomitant]
     Active Substance: SULTAMICILLIN TOSYLATE
     Indication: Product used for unknown indication
     Dosage: FREQUENCY TEXT: DAILY
     Route: 040
     Dates: start: 20240115
  37. TAZOBACTAM [Concomitant]
     Active Substance: TAZOBACTAM
     Indication: Infection
     Dosage: 4500 MG, TID
     Route: 040
     Dates: start: 20230524, end: 20230526
  38. ONDANSETRON [Concomitant]
     Active Substance: ONDANSETRON
     Indication: Supportive care
     Dosage: FREQUENCY TEXT: OTHER
     Dates: start: 20230508, end: 20230516
  39. LEVOFLOXACIN [Concomitant]
     Active Substance: LEVOFLOXACIN
     Indication: Infection
     Dosage: FREQUENCY TEXT: DAILY
     Route: 040
     Dates: start: 20230524, end: 20230526
  40. ATORVASTATIN [Concomitant]
     Active Substance: ATORVASTATIN
     Indication: Product used for unknown indication
     Dosage: FREQUENCY TEXT: DAILY
     Route: 048
     Dates: start: 20230615
  41. VIMPAT [Concomitant]
     Active Substance: LACOSAMIDE
     Indication: Partial seizures
     Dosage: 50 MG, BID
     Route: 048
     Dates: end: 20230612
  42. VIMPAT [Concomitant]
     Active Substance: LACOSAMIDE
     Dosage: 200 MG
     Dates: start: 20230503
  43. VIMPAT [Concomitant]
     Active Substance: LACOSAMIDE
     Dosage: 200 MG
     Route: 042
     Dates: start: 20230612, end: 20230614
  44. VIMPAT [Concomitant]
     Active Substance: LACOSAMIDE
     Dosage: 200 MG
     Dates: start: 20230615
  45. VIMPAT [Concomitant]
     Active Substance: LACOSAMIDE
     Dosage: 100 MG
     Dates: start: 20230612, end: 20230612
  46. VIMPAT [Concomitant]
     Active Substance: LACOSAMIDE
     Dosage: 200 MG, BID
     Route: 048
     Dates: start: 20230613, end: 20230613
  47. REMDESIVIR [Concomitant]
     Active Substance: REMDESIVIR
     Indication: Product used for unknown indication
     Dosage: FREQUENCY TEXT: DAILY
     Route: 040
     Dates: start: 20231129, end: 20231201
  48. AMPHOTERICIN B [Concomitant]
     Active Substance: AMPHOTERICIN B
     Indication: Product used for unknown indication
     Dosage: UNK UNK, QID
     Route: 048
     Dates: start: 20230524, end: 20230605
  49. GLANDOMED [Concomitant]
     Indication: Product used for unknown indication
     Dosage: UNK UNK, TID
     Route: 048
     Dates: start: 20230524, end: 20230606
  50. MEROPENEM [Concomitant]
     Active Substance: MEROPENEM
     Indication: Infection
     Dosage: FREQUENCY TEXT: ONCE, TID
     Route: 040
     Dates: start: 20230605, end: 20230605
  51. MEROPENEM [Concomitant]
     Active Substance: MEROPENEM
     Indication: Product used for unknown indication
     Dosage: FREQUENCY TEXT: DAILY
     Route: 040
     Dates: start: 20240123
  52. MEROPENEM [Concomitant]
     Active Substance: MEROPENEM
     Dosage: FREQUENCY TEXT: DAILY
     Dates: start: 20230611, end: 20230612
  53. VENETOCLAX [Suspect]
     Active Substance: VENETOCLAX
     Indication: Acute myeloid leukaemia
     Dosage: 200 MG
     Route: 048
     Dates: start: 20230717, end: 20230813
  54. VENETOCLAX [Suspect]
     Active Substance: VENETOCLAX
     Dosage: DOSE: 0 MG
     Route: 048
     Dates: start: 20240325, end: 20240407
  55. VENETOCLAX [Suspect]
     Active Substance: VENETOCLAX
     Dosage: DOSE: 0 MG
     Route: 048
     Dates: start: 20230831, end: 20230910
  56. VENETOCLAX [Suspect]
     Active Substance: VENETOCLAX
     Dosage: RAMP-UP PHASE
     Route: 048
     Dates: start: 20230511, end: 20230524
  57. VENETOCLAX [Suspect]
     Active Substance: VENETOCLAX
     Dosage: 200 MG
     Route: 048
     Dates: start: 20240408, end: 20240421
  58. VENETOCLAX [Suspect]
     Active Substance: VENETOCLAX
     Dosage: 100 MG
     Route: 048
     Dates: start: 20230508, end: 20230508
  59. VENETOCLAX [Suspect]
     Active Substance: VENETOCLAX
     Dosage: DOSE: 0 MG
     Route: 048
     Dates: start: 20230925, end: 20231008
  60. VENETOCLAX [Suspect]
     Active Substance: VENETOCLAX
     Dosage: DOSE: 0 MG
     Route: 048
     Dates: start: 20231024, end: 20231105
  61. VENETOCLAX [Suspect]
     Active Substance: VENETOCLAX
     Dosage: 200 MG
     Route: 048
     Dates: start: 20240212, end: 20240225
  62. VENETOCLAX [Suspect]
     Active Substance: VENETOCLAX
     Dosage: DOSE: 0 MG
     Route: 048
     Dates: start: 20231121, end: 20231217
  63. VENETOCLAX [Suspect]
     Active Substance: VENETOCLAX
     Dosage: DOSE: 0 MG
     Route: 048
     Dates: start: 20230525, end: 20230618
  64. VENETOCLAX [Suspect]
     Active Substance: VENETOCLAX
     Dosage: 200 MG
     Route: 048
     Dates: start: 20230509, end: 20230509
  65. VENETOCLAX [Suspect]
     Active Substance: VENETOCLAX
     Dosage: 200 MG
     Route: 048
     Dates: start: 20240506
  66. VENETOCLAX [Suspect]
     Active Substance: VENETOCLAX
     Dosage: 400 MG
     Route: 048
     Dates: start: 20230510, end: 20230510
  67. VENETOCLAX [Suspect]
     Active Substance: VENETOCLAX
     Dosage: DOSE: 0 MG
     Route: 048
     Dates: start: 20240422, end: 20240505
  68. VENETOCLAX [Suspect]
     Active Substance: VENETOCLAX
     Dosage: 200 MG
     Route: 048
     Dates: start: 20231009, end: 20231023
  69. VENETOCLAX [Suspect]
     Active Substance: VENETOCLAX
     Dosage: LAST ADMIN DAT: MAR 2024
     Route: 048
     Dates: start: 20240311
  70. VENETOCLAX [Suspect]
     Active Substance: VENETOCLAX
     Dosage: STANDARD DOSE
     Route: 048
     Dates: start: 20231218, end: 20240101
  71. VENETOCLAX [Suspect]
     Active Substance: VENETOCLAX
     Dosage: 200 MG
     Route: 048
     Dates: start: 20230911, end: 20230924
  72. VENETOCLAX [Suspect]
     Active Substance: VENETOCLAX
     Dosage: DOSE: 0 MG
     Route: 048
     Dates: start: 20240115, end: 20240211
  73. VENETOCLAX [Suspect]
     Active Substance: VENETOCLAX
     Dosage: RAMP-UP PHASE
     Route: 048
     Dates: start: 20230619, end: 20230716
  74. VENETOCLAX [Suspect]
     Active Substance: VENETOCLAX
     Dosage: STANDARD DOSE
     Route: 048
     Dates: start: 20231106, end: 20231120
  75. VENETOCLAX [Suspect]
     Active Substance: VENETOCLAX
     Dosage: 200 MG
     Route: 048
     Dates: start: 20230816, end: 20230830
  76. VENETOCLAX [Suspect]
     Active Substance: VENETOCLAX
     Dosage: DOSE: 0 MG
     Route: 048
     Dates: start: 20230814, end: 20230815
  77. VENETOCLAX [Suspect]
     Active Substance: VENETOCLAX
     Dosage: UNK
     Route: 065
  78. VENETOCLAX [Suspect]
     Active Substance: VENETOCLAX
     Dosage: DOSE: 0 MG
     Route: 048
     Dates: start: 20240226, end: 20240310
  79. VENETOCLAX [Suspect]
     Active Substance: VENETOCLAX
     Dosage: DOSE: 0 MG
     Route: 048
     Dates: start: 20240102, end: 20240414

REACTIONS (7)
  - Urinary tract infection [Recovered/Resolved]
  - Infection [Recovered/Resolved]
  - COVID-19 [Recovered/Resolved]
  - Dizziness [Recovered/Resolved]
  - Partial seizures [Recovered/Resolved]
  - Anaemia [Recovered/Resolved]
  - Anaemia folate deficiency [Recovered/Resolved]

NARRATIVE: CASE EVENT DATE: 20230524
